FAERS Safety Report 8476337 (Version 3)
Quarter: 2013Q2

REPORT INFORMATION
  Report Type: Spontaneous
  Country: US (occurrence: US)
  Receive Date: 20120326
  Receipt Date: 20130513
  Transmission Date: 20140414
  Serious: Yes (Other)
  Sender: FDA-Public Use
  Company Number: US-PFIZER INC-2012073641

PATIENT
  Age: 65 Year
  Sex: Female
  Weight: 74 kg

DRUGS (4)
  1. PREMARIN [Suspect]
     Indication: VULVOVAGINAL DRYNESS
     Dosage: UNK
     Route: 067
  2. CIPRO [Concomitant]
     Indication: CYSTITIS
     Dosage: 250 MG, 2X/DAY
  3. PYRIDIUM [Concomitant]
     Indication: CYSTITIS
     Dosage: 200 MG, 2X/DAY
  4. PREMARIN [Concomitant]
     Indication: HORMONE REPLACEMENT THERAPY
     Dosage: UNK
     Route: 048

REACTIONS (2)
  - Nervous system disorder [Unknown]
  - Vulvovaginal burning sensation [Unknown]
